FAERS Safety Report 15193083 (Version 1)
Quarter: 2018Q3

REPORT INFORMATION
  Report Type: Spontaneous
  Country: FR (occurrence: FR)
  Receive Date: 20180725
  Receipt Date: 20180725
  Transmission Date: 20181010
  Serious: Yes (Hospitalization)
  Sender: FDA-Public Use
  Company Number: FR-TEVA-2018-FR-929224

PATIENT
  Age: 82 Year
  Sex: Male

DRUGS (2)
  1. ATORVASTATINE ARROW 80 MG, COMPRIM? PELLICUL? [Suspect]
     Active Substance: ATORVASTATIN CALCIUM
     Indication: DYSLIPIDAEMIA
     Dosage: 80 MILLIGRAM DAILY;
     Route: 048
     Dates: start: 20180512, end: 20180518
  2. PANTOPRAZOLE MYLAN 40 MG, COMPRIM? GASTRO?R?SISTANT [Suspect]
     Active Substance: PANTOPRAZOLE SODIUM
     Indication: GASTROOESOPHAGEAL REFLUX DISEASE
     Dosage: 40 MILLIGRAM DAILY;
     Route: 048
     Dates: start: 20180511, end: 20180518

REACTIONS (3)
  - Rash scarlatiniform [Recovered/Resolved]
  - Rash morbilliform [Recovered/Resolved]
  - Rash maculo-papular [Recovered/Resolved]

NARRATIVE: CASE EVENT DATE: 20180517
